FAERS Safety Report 7530240-4 (Version None)
Quarter: 2011Q2

REPORT INFORMATION
  Report Type: 
  Country: None (occurrence: None)
  Receive Date: 20110607
  Receipt Date: 20110525
  Transmission Date: 20111010
  Serious: Yes (Other)
  Sender: FDA-Public Use
  Company Number: PHHY2011FR39386

PATIENT
  Sex: Female
  Weight: 69 kg

DRUGS (7)
  1. VENTOLIN [Concomitant]
     Dosage: UNK
  2. JANUVIA [Concomitant]
  3. LAMALINE [Concomitant]
     Dosage: UNK
     Dates: start: 20110221
  4. RASILEZ HCT [Suspect]
     Dosage: 1 DF, QD
     Dates: start: 20110221, end: 20110509
  5. METFORMIN HCL [Concomitant]
     Dosage: 1000 MG, UNK
  6. ZOLPIDEM [Concomitant]
  7. PROCORALAN [Concomitant]
     Dosage: 5 MG, UNK

REACTIONS (2)
  - DECREASED APPETITE [None]
  - WEIGHT DECREASED [None]
